FAERS Safety Report 19960684 (Version 2)
Quarter: 2022Q1

REPORT INFORMATION
  Report Type: Other
  Country: US (occurrence: None)
  Receive Date: 20211016
  Receipt Date: 20220322
  Transmission Date: 20220423
  Serious: No
  Sender: FDA-Public Use
  Company Number: US-ROCHE-2929893

PATIENT
  Sex: Female

DRUGS (2)
  1. OCREVUS [Suspect]
     Active Substance: OCRELIZUMAB
     Indication: Relapsing-remitting multiple sclerosis
     Dosage: DATE OF TREATMENT: 02/APR/2021
     Route: 065
     Dates: start: 20210318
  2. OCREVUS [Suspect]
     Active Substance: OCRELIZUMAB
     Dosage: INFUSE 600 MG IV Q IN 6 MONTHS
     Route: 042

REACTIONS (1)
  - Respiratory syncytial virus infection [Recovered/Resolved]
